FAERS Safety Report 7877178-0 (Version None)
Quarter: 2011Q4

REPORT INFORMATION
  Report Type: 
  Country: None (occurrence: None)
  Receive Date: 20111031
  Receipt Date: 20111024
  Transmission Date: 20120403
  Serious: Yes (Other)
  Sender: FDA-Public Use
  Company Number: JP-ABBOTT-11P-087-0861035-00

PATIENT
  Sex: Male
  Weight: 62 kg

DRUGS (7)
  1. CLARITHROMYCIN [Suspect]
     Indication: BRONCHITIS
     Dosage: 400 MG DAILY
     Dates: start: 20110909, end: 20110914
  2. CLARITHROMYCIN [Suspect]
     Indication: RESPIRATORY TRACT INFECTION
     Route: 048
     Dates: start: 20110909, end: 20110914
  3. AMBROXOL HYDROCHLORIDE [Concomitant]
     Indication: PRODUCTIVE COUGH
     Route: 048
     Dates: start: 20110909, end: 20110914
  4. CANDESARTAN CILEXETIL [Concomitant]
     Indication: HYPERTENSION
     Dosage: 2 MG DAILY
     Route: 048
     Dates: start: 20050105, end: 20110914
  5. TULOBUTEROL [Concomitant]
     Indication: COUGH
     Dosage: 1 MG DAILY
     Route: 062
     Dates: start: 20110909, end: 20110914
  6. KAKKONTOU [Suspect]
     Indication: RESPIRATORY TRACT INFECTION
     Route: 048
     Dates: start: 20110909, end: 20110914
  7. AMLODIPINE BESYLATE [Concomitant]
     Indication: HYPERTENSION
     Dosage: 5 MG DAILY
     Route: 048
     Dates: start: 20050105, end: 20110914

REACTIONS (5)
  - HEADACHE [None]
  - DRUG HYPERSENSITIVITY [None]
  - HEPATIC FUNCTION ABNORMAL [None]
  - ARTHRALGIA [None]
  - CHROMATURIA [None]
